FAERS Safety Report 22045375 (Version 1)
Quarter: 2023Q1

REPORT INFORMATION
  Report Type: Spontaneous
  Country: US (occurrence: US)
  Receive Date: 20230228
  Receipt Date: 20230228
  Transmission Date: 20230418
  Serious: Yes (Other)
  Sender: FDA-Public Use
  Company Number: US-ALKERMES INC.-ALK-2023-000775

PATIENT
  Sex: Male

DRUGS (1)
  1. VIVITROL [Suspect]
     Active Substance: NALTREXONE
     Indication: Alcoholism
     Dosage: 380 MILLIGRAM, QMO
     Route: 030
     Dates: start: 20221027

REACTIONS (8)
  - Avulsion fracture [Unknown]
  - Ligament rupture [Unknown]
  - Accident at work [Unknown]
  - Drug ineffective [Unknown]
  - Alcoholism [Unknown]
  - Arthralgia [Unknown]
  - Malaise [Unknown]
  - Treatment noncompliance [Unknown]
